FAERS Safety Report 23650633 (Version 1)
Quarter: 2024Q1

REPORT INFORMATION
  Report Type: Spontaneous
  Country: US (occurrence: None)
  Receive Date: 20240320
  Receipt Date: 20240320
  Transmission Date: 20240409
  Serious: Yes (Other)
  Sender: FDA-Public Use
  Company Number: US-ROCHE-3406874

PATIENT
  Age: 74 Year
  Sex: Female
  Weight: 61.29 kg

DRUGS (8)
  1. VABYSMO [Suspect]
     Active Substance: FARICIMAB\FARICIMAB-SVOA
     Indication: Neovascular age-related macular degeneration
     Route: 050
     Dates: start: 20230613, end: 20230808
  2. DEXAMETHASONE [Concomitant]
     Active Substance: DEXAMETHASONE
     Dosage: 0.1
     Route: 031
     Dates: start: 20230811
  3. VANCOMYCIN [Concomitant]
     Active Substance: VANCOMYCIN
     Dosage: 0.1
     Route: 031
     Dates: start: 20230811, end: 20230811
  4. CEFUROXIME [Concomitant]
     Active Substance: CEFUROXIME
     Dosage: 0.1
     Dates: start: 20230811, end: 20230811
  5. PREDNISONE [Concomitant]
     Active Substance: PREDNISONE
     Route: 047
     Dates: start: 20230811
  6. MAXITROL [Concomitant]
     Active Substance: DEXAMETHASONE\NEOMYCIN SULFATE\POLYMYXIN B SULFATE
     Route: 047
     Dates: start: 20230811
  7. TIMOLOL [Concomitant]
     Active Substance: TIMOLOL
     Route: 047
     Dates: start: 20230811
  8. ACETAZOLAMIDE [Concomitant]
     Active Substance: ACETAZOLAMIDE
     Dosage: FOR 1 WEEK
     Route: 048
     Dates: start: 20230814

REACTIONS (10)
  - Endophthalmitis [Not Recovered/Not Resolved]
  - Granuloma [Not Recovered/Not Resolved]
  - Keratic precipitates [Not Recovered/Not Resolved]
  - Iritis [Not Recovered/Not Resolved]
  - Vitreal cells [Not Recovered/Not Resolved]
  - Eye pain [Not Recovered/Not Resolved]
  - Vision blurred [Not Recovered/Not Resolved]
  - Visual impairment [Not Recovered/Not Resolved]
  - Intraocular pressure increased [Recovered/Resolved]
  - Vitreous opacities [Not Recovered/Not Resolved]

NARRATIVE: CASE EVENT DATE: 20230811
